FAERS Safety Report 21384211 (Version 1)
Quarter: 2022Q3

REPORT INFORMATION
  Report Type: Spontaneous
  Country: US (occurrence: US)
  Receive Date: 20220928
  Receipt Date: 20220928
  Transmission Date: 20221027
  Serious: No
  Sender: FDA-Public Use
  Company Number: US-BRISTOL-MYERS SQUIBB COMPANY-2022-111643

PATIENT
  Sex: Male

DRUGS (1)
  1. REVLIMID [Suspect]
     Active Substance: LENALIDOMIDE
     Indication: Neoplasm malignant
     Dosage: FREQUENCY :  21 DAYS IN A ROW WITH 7 DAYS OFF
     Route: 065
     Dates: start: 202204

REACTIONS (4)
  - Rash [Unknown]
  - Stomatitis [Unknown]
  - Toothache [Unknown]
  - Tooth disorder [Unknown]
